FAERS Safety Report 8076452-5 (Version None)
Quarter: 2011Q4

REPORT INFORMATION
  Report Type: 
  Country: None (occurrence: None)
  Receive Date: 20111221
  Receipt Date: 20111102
  Transmission Date: 20120403
  Serious: Yes (Hospitalization)
  Sender: FDA-Public Use
  Company Number: PHHY2011US61353

PATIENT
  Age: 31 Year
  Sex: Female

DRUGS (1)
  1. EXJADE [Suspect]
     Dosage: 1000 MG, QD, ORAL
     Route: 048

REACTIONS (4)
  - SICKLE CELL ANAEMIA WITH CRISIS [None]
  - DIARRHOEA [None]
  - WEIGHT DECREASED [None]
  - DECREASED APPETITE [None]
